FAERS Safety Report 5934267-5 (Version None)
Quarter: 2008Q4

REPORT INFORMATION
  Report Type: 
  Country: None (occurrence: None)
  Receive Date: 20081029
  Receipt Date: 20081022
  Transmission Date: 20090506
  Serious: Yes (Death, Hospitalization, Other)
  Sender: FDA-Public Use
  Company Number: AU-CELGENEUS-008-C5013-07110365

PATIENT
  Sex: Female
  Weight: 68 kg

DRUGS (12)
  1. REVLIMID [Suspect]
     Indication: MULTIPLE MYELOMA
     Route: 048
     Dates: start: 20071023, end: 20071106
  2. REVLIMID [Suspect]
     Route: 048
     Dates: start: 20071120, end: 20071124
  3. DEXAMETHASONE [Suspect]
     Indication: MULTIPLE MYELOMA
     Route: 048
     Dates: start: 20071031, end: 20071103
  4. DEXAMETHASONE [Suspect]
     Route: 048
     Dates: start: 20071106, end: 20071127
  5. RED BLOOD CELLS [Concomitant]
     Indication: DRUG USE FOR UNKNOWN INDICATION
     Dosage: 1 UNIT
     Route: 051
     Dates: start: 20071101, end: 20071101
  6. OXYCONTIN [Concomitant]
     Route: 065
  7. NORTRIPTYLINE HCL [Concomitant]
     Indication: DRUG USE FOR UNKNOWN INDICATION
     Route: 048
     Dates: start: 20071217, end: 20071218
  8. HALOPERIDOL [Concomitant]
     Indication: DRUG USE FOR UNKNOWN INDICATION
     Route: 058
     Dates: start: 20071217, end: 20071219
  9. MAGMIN [Concomitant]
     Indication: DRUG USE FOR UNKNOWN INDICATION
     Route: 048
     Dates: start: 20071217, end: 20071219
  10. TRANEXAMIC ACID [Concomitant]
     Indication: DRUG USE FOR UNKNOWN INDICATION
     Route: 048
     Dates: start: 20071217, end: 20071219
  11. MORPHINE [Concomitant]
     Indication: DRUG USE FOR UNKNOWN INDICATION
     Route: 058
     Dates: start: 20071219, end: 20071220
  12. PANTOPRAZOLE SODIUM [Concomitant]
     Indication: GASTRIC ULCER
     Route: 048
     Dates: start: 20071105

REACTIONS (16)
  - ATRIAL FIBRILLATION [None]
  - BLOOD CREATININE INCREASED [None]
  - CONFUSIONAL STATE [None]
  - COUGH [None]
  - DECUBITUS ULCER [None]
  - DEEP VEIN THROMBOSIS [None]
  - DEHYDRATION [None]
  - DEPRESSION [None]
  - DIARRHOEA [None]
  - HYPOALBUMINAEMIA [None]
  - HYPOKALAEMIA [None]
  - MULTIPLE MYELOMA [None]
  - NEUTROPENIA [None]
  - OEDEMA PERIPHERAL [None]
  - SOMNOLENCE [None]
  - THROMBOCYTOPENIA [None]
